FAERS Safety Report 5358484-0 (Version None)
Quarter: 2007Q2

REPORT INFORMATION
  Report Type: 
  Country: None (occurrence: None)
  Receive Date: 20070614
  Receipt Date: 20070614
  Transmission Date: 20071010
  Serious: Yes (Other)
  Sender: FDA-Public Use
  Company Number: None

PATIENT
  Sex: Male

DRUGS (10)
  1. REVLIMID [Suspect]
     Indication: MULTIPLE MYELOMA
     Dosage: 15MG DAILY 21D/28D PO
     Route: 048
  2. DEXAMETHASONE 4MG TAB [Suspect]
     Indication: MULTIPLE MYELOMA
     Dosage: 40MG DAILY X 4 D,OFF 14D PO
     Route: 048
  3. QUININE SULFATE [Concomitant]
  4. VERAPAMIL [Concomitant]
  5. HYDROCHLOROTHIAZIDE [Concomitant]
  6. OMEPRAZOLE [Concomitant]
  7. ALBUTEROL [Concomitant]
  8. QVAR 40 [Concomitant]
  9. COZAAR [Concomitant]
  10. CASODEX [Concomitant]

REACTIONS (3)
  - ABSCESS LIMB [None]
  - LYMPHANGITIS [None]
  - NOCARDIOSIS [None]
